FAERS Safety Report 9050424 (Version 4)
Quarter: 2013Q2

REPORT INFORMATION
  Report Type: Spontaneous
  Country: US (occurrence: US)
  Receive Date: 20130205
  Receipt Date: 20130503
  Transmission Date: 20140414
  Serious: Yes (Hospitalization)
  Sender: FDA-Public Use
  Company Number: US-PFIZER INC-2013040643

PATIENT
  Age: 80 Year
  Sex: Female
  Weight: 64.4 kg

DRUGS (5)
  1. ZYVOX [Suspect]
     Indication: STAPHYLOCOCCAL INFECTION
     Dosage: 600 MG, 2X/DAY (BID)
     Route: 048
     Dates: start: 20130119, end: 20130214
  2. ZYVOX [Suspect]
     Indication: WOUND
  3. PERCOCET [Concomitant]
     Indication: PAIN
     Dosage: 325 MG SIX TIMES A DAY
  4. LISINOPRIL [Concomitant]
     Indication: BLOOD PRESSURE ABNORMAL
     Dosage: 20 MG, DAILY
  5. METOPROLOL [Concomitant]
     Indication: BLOOD PRESSURE ABNORMAL
     Dosage: 25 MG, 2X/DAY

REACTIONS (4)
  - Haematochezia [Recovering/Resolving]
  - Haemorrhage [Recovering/Resolving]
  - Dysstasia [Recovering/Resolving]
  - Drug effect incomplete [Recovered/Resolved]
